FAERS Safety Report 13154417 (Version 1)
Quarter: 2017Q1

REPORT INFORMATION
  Report Type: Spontaneous
  Country: US (occurrence: US)
  Receive Date: 20170123
  Receipt Date: 20170123
  Transmission Date: 20170428
  Serious: Yes (Other)
  Sender: FDA-Public Use
  Company Number: None

PATIENT
  Age: 37 Year
  Sex: Female
  Weight: 51.75 kg

DRUGS (10)
  1. METHYL FOLATE [Concomitant]
  2. METHYL B12 [Concomitant]
  3. TESTOSTERONE SUPPLEMENTS [Concomitant]
  4. WELLBUTRIN [Concomitant]
     Active Substance: BUPROPION HYDROCHLORIDE
  5. IRON SUPPLEMENTS [Concomitant]
     Active Substance: IRON
  6. ADRECOR WITH SAM-E [Concomitant]
  7. FISH OIL [Concomitant]
     Active Substance: FISH OIL
  8. GLUCOSAMINE [Concomitant]
     Active Substance: GLUCOSAMINE
  9. VITAMIN D [Concomitant]
     Active Substance: CHOLECALCIFEROL
  10. PROGESTERONE BANNER LIFE SCIENC, 100 MG [Suspect]
     Active Substance: PROGESTERONE
     Indication: PROGESTERONE DECREASED
     Dosage: ?          QUANTITY:1 CAPSULE(S);?
     Route: 048
     Dates: start: 20161222, end: 20170109

REACTIONS (3)
  - Dysmenorrhoea [None]
  - Metrorrhagia [None]
  - Crying [None]

NARRATIVE: CASE EVENT DATE: 20170109
